FAERS Safety Report 21349100 (Version 1)
Quarter: 2022Q3

REPORT INFORMATION
  Report Type: Spontaneous
  Country: US (occurrence: US)
  Receive Date: 20220919
  Receipt Date: 20220919
  Transmission Date: 20221027
  Serious: No
  Sender: FDA-Public Use
  Company Number: US-ELI_LILLY_AND_COMPANY-US202209007099

PATIENT
  Age: 26 Year
  Sex: Male

DRUGS (6)
  1. HUMALOG [Suspect]
     Active Substance: INSULIN LISPRO
     Indication: Type 2 diabetes mellitus
     Dosage: 10 U, OTHER (WITH MEALS (2 TO 3 TIMES PER DAY)
     Route: 058
     Dates: start: 202202
  2. HUMALOG [Suspect]
     Active Substance: INSULIN LISPRO
     Indication: Type 2 diabetes mellitus
     Dosage: 10 U, OTHER (WITH MEALS (2 TO 3 TIMES PER DAY)
     Route: 058
     Dates: start: 202202
  3. HUMALOG [Suspect]
     Active Substance: INSULIN LISPRO
     Dosage: 10 U, OTHER (WITH MEALS (2 TO 3 TIMES PER DAY)
     Route: 058
     Dates: start: 202202
  4. HUMALOG [Suspect]
     Active Substance: INSULIN LISPRO
     Dosage: 10 U, OTHER (WITH MEALS (2 TO 3 TIMES PER DAY)
     Route: 058
     Dates: start: 202202
  5. GLIPIZIDE [Concomitant]
     Active Substance: GLIPIZIDE
     Indication: Type 2 diabetes mellitus
     Dosage: 10 MG, EACH MORNING (30 MINUTES BEFORE BREAKFAST)
  6. SEMGLEE [INSULIN GLARGINE YFGN] [Concomitant]
     Indication: Type 2 diabetes mellitus
     Dosage: 15 U, EACH EVENING (AT NIGHT BEFORE BED)

REACTIONS (2)
  - Blood glucose increased [Recovered/Resolved]
  - Product dose omission issue [Unknown]

NARRATIVE: CASE EVENT DATE: 20220912
